FAERS Safety Report 7049658-1 (Version None)
Quarter: 2010Q4

REPORT INFORMATION
  Report Type: 
  Country: None (occurrence: None)
  Receive Date: 20101018
  Receipt Date: 20101011
  Transmission Date: 20110411
  Serious: Yes (Hospitalization)
  Sender: FDA-Public Use
  Company Number: A0885877A

PATIENT
  Age: 42 Year
  Sex: Female

DRUGS (5)
  1. ADVAIR DISKUS 100/50 [Suspect]
     Indication: ASTHMA
     Dosage: 1PUFF TWICE PER DAY
     Route: 055
     Dates: start: 20091001
  2. VENTOLIN [Suspect]
     Indication: ASTHMA
     Dosage: 2PUFF AS REQUIRED
     Route: 055
  3. ALBUTEROL [Suspect]
  4. ZANTAC [Concomitant]
  5. ANTIBIOTIC [Concomitant]

REACTIONS (9)
  - ASTHMA [None]
  - CHEST PAIN [None]
  - COLLAPSE OF LUNG [None]
  - CYANOSIS [None]
  - DRUG INEFFECTIVE [None]
  - DYSPNOEA [None]
  - HYPERSENSITIVITY [None]
  - PRODUCTIVE COUGH [None]
  - RESUSCITATION [None]
